FAERS Safety Report 20687173 (Version 1)
Quarter: 2022Q2

REPORT INFORMATION
  Report Type: Spontaneous
  Country: US (occurrence: US)
  Receive Date: 20220407
  Receipt Date: 20220407
  Transmission Date: 20220721
  Serious: No
  Sender: FDA-Public Use
  Company Number: US-BEH-2022143693

PATIENT
  Sex: Female

DRUGS (3)
  1. HIZENTRA [Suspect]
     Active Substance: HUMAN IMMUNOGLOBULIN G
     Indication: Immunodeficiency common variable
     Dosage: 25 MILLILITER, QW
     Route: 058
     Dates: start: 202201
  2. LEVAQUIN [Concomitant]
     Active Substance: LEVOFLOXACIN
     Indication: Infection
  3. LEVAQUIN [Concomitant]
     Active Substance: LEVOFLOXACIN
     Indication: Infection

REACTIONS (2)
  - Ill-defined disorder [Unknown]
  - Infection [Unknown]
